FAERS Safety Report 19820239 (Version 1)
Quarter: 2021Q3

REPORT INFORMATION
  Report Type: Spontaneous
  Country: US (occurrence: US)
  Receive Date: 20210910
  Receipt Date: 20210910
  Transmission Date: 20211014
  Serious: Yes (Hospitalization)
  Sender: FDA-Public Use
  Company Number: None

PATIENT
  Age: 26 Year
  Sex: Male

DRUGS (2)
  1. REGEN?COV [Suspect]
     Active Substance: CASIRIVIMAB\IMDEVIMAB
     Indication: COVID-19
     Dosage: ?          OTHER FREQUENCY:ONCE;?
     Route: 042
  2. REGEN?COV [Concomitant]
     Active Substance: CASIRIVIMAB\IMDEVIMAB
     Dates: start: 20210910, end: 20210910

REACTIONS (10)
  - Tachycardia [None]
  - Blood pressure decreased [None]
  - Ear discomfort [None]
  - Limb discomfort [None]
  - Hyperhidrosis [None]
  - Anxiety [None]
  - Loss of consciousness [None]
  - Movement disorder [None]
  - Oxygen saturation decreased [None]
  - Pallor [None]

NARRATIVE: CASE EVENT DATE: 20210910
